FAERS Safety Report 14317222 (Version 3)
Quarter: 2018Q1

REPORT INFORMATION
  Report Type: Other
  Country: BE (occurrence: BE)
  Receive Date: 20171222
  Receipt Date: 20180306
  Transmission Date: 20180509
  Serious: Yes (Hospitalization, Other)
  Sender: FDA-Public Use
  Company Number: BE-ASPEN-GLO2017BE008666

PATIENT
  Age: 43 Year
  Sex: Male

DRUGS (45)
  1. PREDNISONE. [Suspect]
     Active Substance: PREDNISONE
     Indication: DIFFUSE LARGE B-CELL LYMPHOMA REFRACTORY
     Dosage: UNK
     Route: 065
  2. BLINATUMOMAB [Suspect]
     Active Substance: BLINATUMOMAB
     Dosage: UNK
     Route: 041
  3. CYTARABINE. [Suspect]
     Active Substance: CYTARABINE
     Indication: STEM CELL TRANSPLANT
     Dosage: UNK
     Route: 065
  4. PREDNISONE. [Suspect]
     Active Substance: PREDNISONE
     Dosage: UNK
     Route: 065
  5. CELLTOP [Suspect]
     Active Substance: ETOPOSIDE
     Indication: STEM CELL TRANSPLANT
     Dosage: UNK
     Route: 065
  6. RITUXIMAB. [Suspect]
     Active Substance: RITUXIMAB
     Dosage: UNK
     Route: 065
  7. CELLTOP [Suspect]
     Active Substance: ETOPOSIDE
     Indication: MALIGNANT NEOPLASM PROGRESSION
     Dosage: UNK
     Route: 065
  8. CARBOPLATIN. [Suspect]
     Active Substance: CARBOPLATIN
     Indication: MALIGNANT NEOPLASM PROGRESSION
     Dosage: UNK
     Route: 065
  9. RITUXIMAB. [Suspect]
     Active Substance: RITUXIMAB
     Dosage: UNK
     Route: 065
  10. VANCOMYCIN [Suspect]
     Active Substance: VANCOMYCIN
     Indication: DEVICE RELATED INFECTION
     Dosage: UNK
     Route: 065
  11. ENDOXAN [Suspect]
     Active Substance: CYCLOPHOSPHAMIDE
     Indication: DIFFUSE LARGE B-CELL LYMPHOMA RECURRENT
     Dosage: UNK
     Route: 065
  12. GEMCITABINE [Suspect]
     Active Substance: GEMCITABINE\GEMCITABINE HYDROCHLORIDE
     Indication: DIFFUSE LARGE B-CELL LYMPHOMA RECURRENT
     Dosage: UNK
     Route: 065
  13. BLINATUMOMAB [Suspect]
     Active Substance: BLINATUMOMAB
     Indication: DIFFUSE LARGE B-CELL LYMPHOMA RECURRENT
     Dosage: 0.009 MG, QD
     Route: 065
     Dates: start: 20161229, end: 20170104
  14. RITUXIMAB. [Suspect]
     Active Substance: RITUXIMAB
     Indication: DIFFUSE LARGE B-CELL LYMPHOMA STAGE III
     Dosage: UNK
     Route: 065
  15. RITUXIMAB. [Suspect]
     Active Substance: RITUXIMAB
     Dosage: UNK
     Route: 065
  16. BLINATUMOMAB [Suspect]
     Active Substance: BLINATUMOMAB
     Dosage: UNK
     Route: 042
  17. MELPHALAN. [Suspect]
     Active Substance: MELPHALAN
     Indication: STEM CELL TRANSPLANT
     Dosage: UNK
     Route: 065
  18. PREDNISONE. [Suspect]
     Active Substance: PREDNISONE
     Indication: DIFFUSE LARGE B-CELL LYMPHOMA STAGE III
     Dosage: UNK
     Route: 065
  19. PREDNISONE. [Suspect]
     Active Substance: PREDNISONE
     Dosage: UNK
     Route: 065
  20. RITUXIMAB. [Suspect]
     Active Substance: RITUXIMAB
     Indication: B-CELL LYMPHOMA
     Dosage: UNK
     Route: 065
  21. RITUXIMAB. [Suspect]
     Active Substance: RITUXIMAB
     Dosage: UNK
     Route: 065
  22. HOLOXAN [Suspect]
     Active Substance: IFOSFAMIDE
     Indication: MALIGNANT NEOPLASM PROGRESSION
     Dosage: UNK
     Route: 065
  23. HOLOXAN [Suspect]
     Active Substance: IFOSFAMIDE
     Indication: DIFFUSE LARGE B-CELL LYMPHOMA REFRACTORY
     Dosage: UNK
     Route: 065
  24. DOXORUBICIN [Suspect]
     Active Substance: DOXORUBICIN
     Indication: DIFFUSE LARGE B-CELL LYMPHOMA REFRACTORY
     Dosage: UNK
     Route: 065
  25. DOXORUBICIN [Suspect]
     Active Substance: DOXORUBICIN
     Indication: DIFFUSE LARGE B-CELL LYMPHOMA RECURRENT
     Dosage: UNK
     Route: 065
  26. VINCRISTINE [Suspect]
     Active Substance: VINCRISTINE
     Dosage: UNK
     Route: 065
  27. CARMUSTINE [Suspect]
     Active Substance: CARMUSTINE
     Indication: STEM CELL TRANSPLANT
     Dosage: UNK
     Route: 065
  28. OXALIPLATIN. [Suspect]
     Active Substance: OXALIPLATIN
     Indication: DIFFUSE LARGE B-CELL LYMPHOMA RECURRENT
     Dosage: UNK
     Route: 065
  29. DEXAMETHASONE. [Suspect]
     Active Substance: DEXAMETHASONE
     Indication: PRODUCT USED FOR UNKNOWN INDICATION
     Dosage: 20 MG, QD
     Route: 065
  30. CARBOPLATIN. [Suspect]
     Active Substance: CARBOPLATIN
     Indication: DIFFUSE LARGE B-CELL LYMPHOMA REFRACTORY
     Dosage: UNK
     Route: 065
  31. RITUXIMAB. [Suspect]
     Active Substance: RITUXIMAB
     Indication: DIFFUSE LARGE B-CELL LYMPHOMA REFRACTORY
     Dosage: UNK
     Route: 065
  32. RITUXIMAB. [Suspect]
     Active Substance: RITUXIMAB
     Dosage: UNK
     Route: 065
  33. ENDOXAN [Suspect]
     Active Substance: CYCLOPHOSPHAMIDE
     Indication: DIFFUSE LARGE B-CELL LYMPHOMA STAGE III
  34. VINCRISTINE [Suspect]
     Active Substance: VINCRISTINE
     Dosage: UNK
     Route: 065
  35. COPANLISIB [Suspect]
     Active Substance: COPANLISIB
     Indication: DIFFUSE LARGE B-CELL LYMPHOMA RECURRENT
     Dosage: UNK
     Route: 065
  36. DEXAMETHASONE. [Suspect]
     Active Substance: DEXAMETHASONE
     Dosage: UNK
     Route: 065
  37. CELLTOP [Suspect]
     Active Substance: ETOPOSIDE
     Indication: DIFFUSE LARGE B-CELL LYMPHOMA REFRACTORY
     Dosage: UNK
     Route: 065
  38. VANCOMYCIN [Suspect]
     Active Substance: VANCOMYCIN
     Indication: STAPHYLOCOCCAL INFECTION
     Dosage: UNK
     Route: 065
  39. ENDOXAN [Suspect]
     Active Substance: CYCLOPHOSPHAMIDE
     Indication: DIFFUSE LARGE B-CELL LYMPHOMA REFRACTORY
     Dosage: UNK
     Route: 065
  40. BENDAMUSTINE HYDROCHLORIDE. [Suspect]
     Active Substance: BENDAMUSTINE HYDROCHLORIDE
     Indication: DIFFUSE LARGE B-CELL LYMPHOMA RECURRENT
     Dosage: UNK
     Route: 065
  41. BLINATUMOMAB [Suspect]
     Active Substance: BLINATUMOMAB
     Indication: DIFFUSE LARGE B-CELL LYMPHOMA REFRACTORY
     Dosage: 0.028 MG, QD
     Route: 065
     Dates: start: 20170105, end: 20170111
  42. BLINATUMOMAB [Suspect]
     Active Substance: BLINATUMOMAB
     Indication: DIFFUSE LARGE B-CELL LYMPHOMA
     Dosage: 0.112 MG, QD
     Route: 042
     Dates: start: 20170104, end: 20170308
  43. DOXORUBICIN [Suspect]
     Active Substance: DOXORUBICIN
     Indication: DIFFUSE LARGE B-CELL LYMPHOMA STAGE III
     Dosage: UNK
     Route: 065
  44. VINCRISTINE [Suspect]
     Active Substance: VINCRISTINE
     Indication: DIFFUSE LARGE B-CELL LYMPHOMA
     Dosage: UNK
     Route: 065
  45. LINEZOLID. [Suspect]
     Active Substance: LINEZOLID
     Indication: DEVICE RELATED INFECTION
     Dosage: UNK
     Route: 065

REACTIONS (18)
  - Device related infection [Unknown]
  - Pyrexia [Unknown]
  - Drug ineffective [Recovered/Resolved]
  - Metastases to lung [Recovered/Resolved]
  - Glomerular filtration rate decreased [Unknown]
  - Tubulointerstitial nephritis [Unknown]
  - Diffuse large B-cell lymphoma [Recovered/Resolved]
  - End stage renal disease [Unknown]
  - Renal impairment [Unknown]
  - Malignant neoplasm progression [Recovered/Resolved]
  - Neutropenic sepsis [Unknown]
  - Metastases to bone marrow [Recovered/Resolved]
  - Metastases to retroperitoneum [Recovered/Resolved]
  - Metastases to liver [Recovered/Resolved]
  - Cytopenia [Recovered/Resolved]
  - Staphylococcal infection [Unknown]
  - Metastases to spleen [Recovered/Resolved]
  - Metastases to muscle [Recovered/Resolved]
